FAERS Safety Report 5650662-6 (Version None)
Quarter: 2008Q1

REPORT INFORMATION
  Report Type: 
  Country: None (occurrence: None)
  Receive Date: 20080305
  Receipt Date: 20080219
  Transmission Date: 20080703
  Serious: Yes (Other)
  Sender: FDA-Public Use
  Company Number: PHHY2008JP02106

PATIENT
  Age: 58 Year
  Sex: Male

DRUGS (4)
  1. DIOVAN [Suspect]
     Route: 048
  2. ASPIRIN [Suspect]
     Route: 048
  3. CONIEL [Suspect]
     Route: 048
  4. ACTOS [Suspect]
     Route: 048

REACTIONS (2)
  - DYSGEUSIA [None]
  - ELECTIVE SURGERY [None]
